FAERS Safety Report 4343978-7 (Version None)
Quarter: 2004Q2

REPORT INFORMATION
  Report Type: 
  Country: None (occurrence: None)
  Receive Date: 20040422
  Receipt Date: 20040416
  Transmission Date: 20050107
  Serious: Yes (Hospitalization)
  Sender: FDA-Public Use
  Company Number: JP-ROCHE-364687

PATIENT
  Age: 59 Year
  Sex: Male
  Weight: 53.4 kg

DRUGS (4)
  1. CAPECITABINE [Suspect]
     Dosage: DOSE REPORTED AS ^4200 MG/DAY BID^. INTERMITTENT THERAPY TWO WEEKS TREATMENT, ONE WEEK REST, BETWEE+
     Route: 048
     Dates: start: 20030912, end: 20040416
  2. SERRAPEPTASE [Concomitant]
     Dosage: START DATE WAS REPORTED AS ^BEFORE STARTING STUDY DRUG^.
  3. AMBROXOL HYDROCHLORIDE [Concomitant]
     Dosage: START DATE WAS REPORTED AS ^BEFORE STARTING STUDY DRUG^.
  4. CLARITHROMYCIN [Concomitant]
     Dosage: START DATE WAS REPORTED AS ^BEFORE STARTING STUDY DRUG^.

REACTIONS (5)
  - COLORECTAL CANCER METASTATIC [None]
  - HYDRONEPHROSIS [None]
  - MALIGNANT NEOPLASM PROGRESSION [None]
  - METASTASES TO URINARY TRACT [None]
  - URETERIC STENOSIS [None]
